FAERS Safety Report 25067430 (Version 2)
Quarter: 2025Q1

REPORT INFORMATION
  Report Type: Other
  Country: GB (occurrence: GB)
  Receive Date: 20250312
  Receipt Date: 20250329
  Transmission Date: 20250408
  Serious: Yes (Disabling, Other)
  Sender: GLENMARK
  Company Number: None

PATIENT
  Age: 44 Year
  Sex: Male
  Weight: 73 kg

DRUGS (3)
  1. PRAMIPEXOLE DIHYDROCHLORIDE [Suspect]
     Active Substance: PRAMIPEXOLE DIHYDROCHLORIDE
     Indication: Restless legs syndrome
     Dosage: 2 DOSAGE FORM, QD (2 X 0.88MG TABLETS AT NIGHT)
     Route: 065
     Dates: start: 20040601, end: 20210601
  2. PRAMIPEXOLE DIHYDROCHLORIDE [Suspect]
     Active Substance: PRAMIPEXOLE DIHYDROCHLORIDE
     Route: 065
  3. CODEINE [Concomitant]
     Active Substance: CODEINE
     Indication: Product used for unknown indication
     Route: 065

REACTIONS (7)
  - Mental impairment [Unknown]
  - Restless leg augmentation syndrome [Recovered/Resolved with Sequelae]
  - Dopamine agonist withdrawal syndrome [Unknown]
  - Medication error [Unknown]
  - Emotional disorder [Unknown]
  - Impulse-control disorder [Unknown]
  - Product communication issue [Unknown]

NARRATIVE: CASE EVENT DATE: 20070701
